FAERS Safety Report 4541682-3 (Version None)
Quarter: 2004Q4

REPORT INFORMATION
  Report Type: 
  Country: None (occurrence: None)
  Receive Date: 20041227
  Receipt Date: 20041213
  Transmission Date: 20050328
  Serious: Yes (Hospitalization)
  Sender: FDA-Public Use
  Company Number: 211076

PATIENT
  Age: 14 Year
  Sex: Male
  Weight: 39.3 kg

DRUGS (1)
  1. NUTROPIN AQ [Suspect]
     Indication: LUNG DISORDER
     Dosage: 1.7MG, 6/WEEK, SUBCUTANEOUS
     Route: 058
     Dates: start: 20001113

REACTIONS (1)
  - DIABETES MELLITUS [None]
